FAERS Safety Report 9795607 (Version 1)
Quarter: 2014Q1

REPORT INFORMATION
  Report Type: Spontaneous
  Country: US (occurrence: US)
  Receive Date: 20140103
  Receipt Date: 20140103
  Transmission Date: 20141002
  Serious: Yes (Hospitalization, Other)
  Sender: FDA-Public Use
  Company Number: US-BAYER-2014-000808

PATIENT
  Age: 41 Year
  Sex: Female
  Weight: 59.36 kg

DRUGS (5)
  1. YAZ [Suspect]
     Indication: CONTRACEPTION
     Dosage: UNK
  2. MYLANTA [CALCIUM CARBONATE] [Concomitant]
     Dosage: UNK
     Route: 048
  3. IBUPROFEN [Concomitant]
     Dosage: UNK
     Route: 048
  4. HYDROCODONE [Concomitant]
     Dosage: UNK, PRN (AS NEEDED)
  5. ZITHROMAX [Concomitant]
     Dosage: UNK

REACTIONS (2)
  - Pulmonary embolism [None]
  - Cholelithiasis [None]
